FAERS Safety Report 7230118-X (Version None)
Quarter: 2011Q1

REPORT INFORMATION
  Report Type: 
  Country: None (occurrence: None)
  Receive Date: 20110118
  Receipt Date: 20110110
  Transmission Date: 20110831
  Serious: Yes (Other)
  Sender: FDA-Public Use
  Company Number: US-US-EMD SERONO, INC.-7022568

PATIENT
  Sex: Female

DRUGS (2)
  1. REBIF [Suspect]
     Indication: PRODUCT USED FOR UNKNOWN INDICATION
     Route: 058
     Dates: start: 20021026, end: 20090201
  2. REBIF [Suspect]
     Route: 058
     Dates: start: 20101108, end: 20100101

REACTIONS (2)
  - SCHIZOPHRENIA, PARANOID TYPE [None]
  - DEPRESSION [None]
